FAERS Safety Report 20796558 (Version 3)
Quarter: 2022Q4

REPORT INFORMATION
  Report Type: Report from Study
  Country: US (occurrence: US)
  Receive Date: 20220506
  Receipt Date: 20221031
  Transmission Date: 20230113
  Serious: Yes (Other)
  Sender: FDA-Public Use
  Company Number: US-MYLANLABS-2022M1033082

PATIENT
  Sex: Female
  Weight: 44.45 kg

DRUGS (1)
  1. GLATIRAMER ACETATE [Suspect]
     Active Substance: GLATIRAMER ACETATE
     Indication: Multiple sclerosis
     Dosage: 40 MILLIGRAM, 3XW
     Route: 058

REACTIONS (15)
  - Hallucination [Unknown]
  - Dizziness [Unknown]
  - Weight decreased [Unknown]
  - Arthropathy [Unknown]
  - Sensory loss [Unknown]
  - Paraesthesia [Unknown]
  - Asthenia [Unknown]
  - Nausea [Unknown]
  - Injection site pain [Unknown]
  - Micturition urgency [Unknown]
  - Immediate post-injection reaction [Unknown]
  - Flushing [Unknown]
  - Fatigue [Unknown]
  - Vomiting [Recovered/Resolved]
  - Cough [Unknown]
